FAERS Safety Report 20460045 (Version 2)
Quarter: 2022Q1

REPORT INFORMATION
  Report Type: Spontaneous
  Country: PL (occurrence: PL)
  Receive Date: 20220211
  Receipt Date: 20220223
  Transmission Date: 20220424
  Serious: Yes (Hospitalization, Other)
  Sender: FDA-Public Use
  Company Number: None

PATIENT
  Age: 83 Year
  Sex: Female
  Weight: 91 kg

DRUGS (23)
  1. FUROSEMIDE [Interacting]
     Active Substance: FUROSEMIDE
     Indication: Product used for unknown indication
     Dosage: 3 TABLETS EVERY OTHER DAY
  2. ISOSORBIDE MONONITRATE [Interacting]
     Active Substance: ISOSORBIDE MONONITRATE
     Indication: Product used for unknown indication
     Dosage: AS NEEDED, ON AVERAGE 1-2 X / 24H
  3. METOCLOPRAMIDE [Interacting]
     Active Substance: METOCLOPRAMIDE
     Indication: Constipation
     Dosage: 2 TABLETS OCCASIONALLY IN CASE OF CONSTIPATION, BUT FOR MANY MONTHS
  4. RAMIPRIL [Interacting]
     Active Substance: RAMIPRIL
     Indication: Product used for unknown indication
     Dosage: 1-0-0
  5. ALLOPURINOL [Suspect]
     Active Substance: ALLOPURINOL
     Indication: Product used for unknown indication
     Dosage: 100 MG, QD (1-0-0)
  6. ATORVASTATIN [Suspect]
     Active Substance: ATORVASTATIN
     Indication: Product used for unknown indication
     Dosage: 20 MG, QD
  7. BETAHISTINE [Suspect]
     Active Substance: BETAHISTINE
     Indication: Product used for unknown indication
     Dosage: 24 MG, QD (0-1-0)
  8. HYDROCHLOROTHIAZIDE [Suspect]
     Active Substance: HYDROCHLOROTHIAZIDE
     Indication: Product used for unknown indication
     Dosage: 25 MG (1-0-0)
  9. LEVOTHYROXINE [Suspect]
     Active Substance: LEVOTHYROXINE
     Indication: Product used for unknown indication
     Dosage: 100 UG, QD (1-0-0)
  10. ACETAMINOPHEN [Suspect]
     Active Substance: ACETAMINOPHEN
     Indication: Product used for unknown indication
     Dosage: 500 MG, QD (0-0-1)
  11. SPIRONOLACTONE [Interacting]
     Active Substance: SPIRONOLACTONE
     Indication: Product used for unknown indication
     Dosage: 0-1-0, SINCE TWO YEARS
  12. ALPRAZOLAM [Interacting]
     Active Substance: ALPRAZOLAM
     Indication: Depression
     Dosage: AD HOC, ON AVERAGE 2 X / 24H
  13. CITALOPRAM [Interacting]
     Active Substance: CITALOPRAM HYDROBROMIDE
     Indication: Depression
     Dosage: 1-0-0
  14. TRAMADOL [Interacting]
     Active Substance: TRAMADOL
     Indication: Product used for unknown indication
     Dosage: AD HOC, 2 TABLETS
  15. ZOLPIDEM [Interacting]
     Active Substance: ZOLPIDEM TARTRATE
     Indication: Depression
     Dosage: 0-0-1
  16. DABIGATRAN [Suspect]
     Active Substance: DABIGATRAN
     Indication: Product used for unknown indication
     Dosage: 1-0-1
  17. GLUCOSE + NIKETHAMIDE [Concomitant]
     Indication: Product used for unknown indication
     Dosage: 1,5 + 125 MG, AD HOC
  18. HYDROXYZINE [Suspect]
     Active Substance: HYDROXYZINE HYDROCHLORIDE
     Indication: Product used for unknown indication
     Dosage: AD HOC, ON AVERAGE 2 X / 24H
  19. METOPROLOL [Suspect]
     Active Substance: METOPROLOL
     Indication: Product used for unknown indication
     Dosage: 1-0-1
  20. OMEPRAZOLE [Suspect]
     Active Substance: OMEPRAZOLE
     Indication: Product used for unknown indication
     Dosage: 20 MG, BID (1-1-0)
  21. POTASSIUM CHLORIDE [Suspect]
     Active Substance: POTASSIUM CHLORIDE
     Indication: Product used for unknown indication
  22. ALBUTEROL [Suspect]
     Active Substance: ALBUTEROL
     Indication: Product used for unknown indication
     Dosage: AD HOC
  23. GLICLAZIDE [Suspect]
     Active Substance: GLICLAZIDE
     Indication: Product used for unknown indication
     Dosage: 60 MG, TID (EXCESSIVE DOSES)

REACTIONS (23)
  - Syncope [Recovering/Resolving]
  - Incorrect product administration duration [Unknown]
  - Dizziness [Recovering/Resolving]
  - Drug interaction [Unknown]
  - Fall [Unknown]
  - Off label use [Unknown]
  - Dysuria [Unknown]
  - Hypoglycaemia [Recovered/Resolved]
  - Osteoporosis [Unknown]
  - Hiatus hernia [Unknown]
  - Gastric polyps [Unknown]
  - Parkinsonism [Unknown]
  - Hypotension [Unknown]
  - Drug ineffective [Unknown]
  - Constipation [Unknown]
  - Hyponatraemia [Unknown]
  - Dementia [Unknown]
  - Hyperkalaemia [Unknown]
  - Medication error [Unknown]
  - Cognitive disorder [Unknown]
  - Atrioventricular block first degree [Unknown]
  - Drug dependence [Unknown]
  - Mobility decreased [Unknown]
